FAERS Safety Report 13690251 (Version 1)
Quarter: 2017Q2

REPORT INFORMATION
  Report Type: Spontaneous
  Country: US (occurrence: US)
  Receive Date: 20170623
  Receipt Date: 20170623
  Transmission Date: 20170830
  Serious: Yes (Hospitalization)
  Sender: FDA-Public Use
  Company Number: None

PATIENT
  Age: 65 Year
  Sex: Female

DRUGS (17)
  1. IBRANCE [Suspect]
     Active Substance: PALBOCICLIB
     Indication: BREAST CANCER
     Dosage: 100MG QD X 3 WKS ON 1 WK OFF PO
     Route: 048
     Dates: start: 201609
  2. NITROGLYCER [Concomitant]
  3. LIOTHYRONINE [Concomitant]
     Active Substance: LIOTHYRONINE
  4. ASPIRIN. [Concomitant]
     Active Substance: ASPIRIN
  5. BIOTIN [Concomitant]
     Active Substance: BIOTIN
  6. ATORVASTATIN [Concomitant]
     Active Substance: ATORVASTATIN
  7. PLAVIX [Concomitant]
     Active Substance: CLOPIDOGREL BISULFATE
  8. LETROZOLE. [Concomitant]
     Active Substance: LETROZOLE
  9. CITRACAL [Concomitant]
     Active Substance: CALCIUM CITRATE
  10. SENOKOT [Concomitant]
     Active Substance: SENNOSIDES
  11. OXYCODONE [Concomitant]
     Active Substance: OXYCODONE
  12. MIRALAX [Concomitant]
     Active Substance: POLYETHYLENE GLYCOL 3350
  13. OMEPRAZOLE. [Concomitant]
     Active Substance: OMEPRAZOLE
  14. CARVEDILOL. [Concomitant]
     Active Substance: CARVEDILOL
  15. METHADONE [Concomitant]
     Active Substance: METHADONE HYDROCHLORIDE
  16. ESCITALOPRAM [Concomitant]
     Active Substance: ESCITALOPRAM OXALATE
  17. ONDANSETRON [Concomitant]
     Active Substance: ONDANSETRON

REACTIONS (2)
  - Cardiomyopathy [None]
  - Myocardial infarction [None]

NARRATIVE: CASE EVENT DATE: 20170609
